FAERS Safety Report 11197899 (Version 6)
Quarter: 2015Q4

REPORT INFORMATION
  Report Type: Report from Study
  Country: US (occurrence: US)
  Receive Date: 20150617
  Receipt Date: 20151207
  Transmission Date: 20160304
  Serious: Yes (Hospitalization, Other)
  Sender: FDA-Public Use
  Company Number: PHHY2015US070193

PATIENT
  Age: 63 Year
  Sex: Female
  Weight: 80.5 kg

DRUGS (9)
  1. GENERIC METFORMIN [Suspect]
     Active Substance: METFORMIN HYDROCHLORIDE
     Indication: ENDOMETRIAL CANCER RECURRENT
     Dosage: 500 MG, BID
     Route: 048
     Dates: start: 20150423, end: 20150519
  2. AFINITOR [Suspect]
     Active Substance: EVEROLIMUS
     Indication: ENDOMETRIAL CANCER RECURRENT
     Dosage: 10 MG, QD
     Route: 048
     Dates: start: 20150429, end: 20150519
  3. BISACODYL. [Concomitant]
     Active Substance: BISACODYL
     Indication: CONSTIPATION
     Dosage: 1 DF, BID, PRN
     Route: 048
  4. NEXIUM [Concomitant]
     Active Substance: ESOMEPRAZOLE MAGNESIUM
     Indication: GASTROOESOPHAGEAL REFLUX DISEASE
     Dosage: 40 MG, QD
     Route: 065
  5. POTASSIUM GLUCONATE [Concomitant]
     Active Substance: POTASSIUM GLUCONATE
     Indication: SUPPLEMENTATION THERAPY
     Dosage: 595 MG, QD
     Route: 048
  6. LORAZEPAM. [Concomitant]
     Active Substance: LORAZEPAM
     Indication: ANXIETY
     Dosage: 0.5 MG, BID PRN
     Route: 048
  7. MAGNESIUM [Concomitant]
     Active Substance: MAGNESIUM
     Indication: SUPPLEMENTATION THERAPY
     Dosage: 500 MG, QD
     Route: 048
  8. CGS 20267 [Suspect]
     Active Substance: LETROZOLE
     Indication: ENDOMETRIAL CANCER RECURRENT
     Dosage: 2.5 MG, QD
     Route: 048
     Dates: start: 20150429, end: 20150519
  9. IRON [Concomitant]
     Active Substance: IRON
     Indication: SUPPLEMENTATION THERAPY
     Dosage: 65 MG, QD
     Route: 048

REACTIONS (2)
  - Pancytopenia [Unknown]
  - Urinary tract infection [Recovered/Resolved]

NARRATIVE: CASE EVENT DATE: 20150516
